FAERS Safety Report 9696205 (Version 1)
Quarter: 2013Q4

REPORT INFORMATION
  Report Type: Report from Study
  Country: US (occurrence: US)
  Receive Date: 20131119
  Receipt Date: 20131119
  Transmission Date: 20140711
  Serious: Yes (Hospitalization)
  Sender: FDA-Public Use
  Company Number: US-ABBVIE-13P-163-1170680-00

PATIENT
  Age: 79 Year
  Sex: Female
  Weight: 77.18 kg

DRUGS (19)
  1. HUMIRA [Suspect]
     Indication: RHEUMATOID ARTHRITIS
     Route: 058
     Dates: start: 201309, end: 201310
  2. HUMIRA [Suspect]
     Route: 058
     Dates: start: 20131107
  3. LIPITOR [Concomitant]
     Indication: BLOOD CHOLESTEROL INCREASED
  4. DIOVAN [Concomitant]
     Indication: HYPERTENSION
  5. AMIODARONE [Concomitant]
     Indication: ATRIAL FIBRILLATION
     Dates: start: 201301
  6. COUMADIN [Concomitant]
     Indication: ATRIAL FIBRILLATION
     Dates: start: 201301
  7. LASIX [Concomitant]
     Indication: FLUID RETENTION
  8. PREDNISONE [Concomitant]
     Indication: RHEUMATOID ARTHRITIS
  9. PREVACID [Concomitant]
     Indication: PROPHYLAXIS
  10. DRAMAMINE [Concomitant]
     Indication: DIZZINESS
  11. TOPIRAMATE [Concomitant]
     Indication: NEUROPATHY PERIPHERAL
  12. LEVOTHYROXINE [Concomitant]
     Indication: HYPOTHYROIDISM
  13. HYDROXYCHLOROQUINE [Concomitant]
     Indication: RHEUMATOID ARTHRITIS
  14. ZETIA [Concomitant]
     Indication: BLOOD CHOLESTEROL INCREASED
  15. METHOTREXATE [Concomitant]
     Indication: RHEUMATOID ARTHRITIS
  16. FISH OIL [Concomitant]
     Indication: PRODUCT USED FOR UNKNOWN INDICATION
  17. HYDROCODONE W/APAP [Concomitant]
     Indication: PAIN
     Dates: start: 201311
  18. CALCIUM [Concomitant]
     Indication: MINERAL SUPPLEMENTATION
  19. MULTIVITAMIN [Concomitant]
     Indication: VITAMIN SUPPLEMENTATION

REACTIONS (2)
  - Musculoskeletal pain [Recovering/Resolving]
  - Joint range of motion decreased [Recovering/Resolving]
